FAERS Safety Report 5688245-4 (Version None)
Quarter: 2008Q1

REPORT INFORMATION
  Report Type: 
  Country: None (occurrence: None)
  Receive Date: 20080331
  Receipt Date: 20080324
  Transmission Date: 20080703
  Serious: Yes (Other)
  Sender: FDA-Public Use
  Company Number: US-JNJFOC-20080200174

PATIENT
  Sex: Male
  Weight: 111.13 kg

DRUGS (4)
  1. REMICADE [Suspect]
     Indication: CROHN'S DISEASE
     Route: 042
  2. 6-MP [Concomitant]
     Indication: CROHN'S DISEASE
     Route: 065
  3. TRAMADOL HCL [Concomitant]
  4. TRAZODONE HCL [Concomitant]

REACTIONS (1)
  - MALIGNANT MELANOMA [None]
